FAERS Safety Report 5672767-6 (Version None)
Quarter: 2008Q1

REPORT INFORMATION
  Report Type: 
  Country: None (occurrence: None)
  Receive Date: 20080319
  Receipt Date: 20070731
  Transmission Date: 20080703
  Serious: No
  Sender: FDA-Public Use
  Company Number: US-KINGPHARMUSA00001-K200700966

PATIENT

DRUGS (5)
  1. ALTACE [Suspect]
     Indication: HYPERTENSION
     Dosage: 2.5 MG, QD
     Route: 048
     Dates: start: 20070726
  2. CLONAZEPAM [Concomitant]
  3. ASPIRIN [Concomitant]
     Dosage: 81 MG, QD
     Route: 048
  4. VITAMINS [Concomitant]
  5. GINKO BILOBA [Concomitant]
     Dosage: UNK, UNK

REACTIONS (5)
  - ABDOMINAL DISCOMFORT [None]
  - ANOREXIA [None]
  - PITYRIASIS ROSEA [None]
  - PYREXIA [None]
  - RASH [None]
